FAERS Safety Report 23905890 (Version 1)
Quarter: 2024Q2

REPORT INFORMATION
  Report Type: Spontaneous
  Country: IN (occurrence: IN)
  Receive Date: 20240527
  Receipt Date: 20240527
  Transmission Date: 20240716
  Serious: Yes (Hospitalization, Other)
  Sender: FDA-Public Use
  Company Number: IN-SA-2024SA153843

PATIENT
  Age: 16 Year
  Sex: Male

DRUGS (7)
  1. THYMOGLOBULIN [Suspect]
     Active Substance: LAPINE T-LYMPHOCYTE IMMUNE GLOBULIN
     Indication: Immunosuppression
     Dosage: UNK
  2. THYMOGLOBULIN [Suspect]
     Active Substance: LAPINE T-LYMPHOCYTE IMMUNE GLOBULIN
     Indication: End stage renal disease
  3. CYCLOPHOSPHAMIDE [Suspect]
     Active Substance: CYCLOPHOSPHAMIDE
     Indication: IgA nephropathy
     Dosage: UNK
  4. MYCOPHENOLATE SODIUM [Suspect]
     Active Substance: MYCOPHENOLATE SODIUM
     Indication: IgA nephropathy
     Dosage: UNK
  5. MYCOPHENOLATE SODIUM [Suspect]
     Active Substance: MYCOPHENOLATE SODIUM
     Indication: Immunosuppression
  6. TACROLIMUS [Suspect]
     Active Substance: TACROLIMUS
     Indication: Immunosuppression
     Dosage: UNK
  7. UNSPECIFIED INGREDIENT [Concomitant]
     Active Substance: UNSPECIFIED INGREDIENT
     Indication: Prophylaxis

REACTIONS (10)
  - Thrombotic microangiopathy [Recovered/Resolved]
  - Thrombocytopenia [Recovered/Resolved]
  - Microangiopathic haemolytic anaemia [Recovered/Resolved]
  - Thrombotic thrombocytopenic purpura [Recovered/Resolved]
  - Anaemia [Recovered/Resolved]
  - Haemolysis [Recovered/Resolved]
  - Renal tubular necrosis [Recovered/Resolved]
  - Urinary tract infection [Recovered/Resolved]
  - Klebsiella infection [Recovered/Resolved]
  - Pyrexia [Recovered/Resolved]
